FAERS Safety Report 9440818 (Version 1)
Quarter: 2013Q3

REPORT INFORMATION
  Report Type: Spontaneous
  Country: IN (occurrence: None)
  Receive Date: 20130801
  Receipt Date: 20130801
  Transmission Date: 20140515
  Serious: Yes (Death)
  Sender: FDA-Public Use
  Company Number: EUS-2013-00439

PATIENT
  Age: 8 Year
  Sex: Female

DRUGS (3)
  1. ASPARAGINASE [Suspect]
     Indication: PRODUCT USED FOR UNKNOWN INDICATION
  2. VINCRISTINE (VINCRISTINE) (VINCRISTINE) [Concomitant]
  3. PREDNISOLONE (PREDNISOLONE) (PREDNISOLONE) [Concomitant]

REACTIONS (1)
  - Congenital aplastic anaemia [None]
